FAERS Safety Report 20448182 (Version 1)
Quarter: 2022Q1

REPORT INFORMATION
  Report Type: Spontaneous
  Country: US (occurrence: US)
  Receive Date: 20220209
  Receipt Date: 20220209
  Transmission Date: 20220423
  Serious: Yes (Hospitalization, Other)
  Sender: FDA-Public Use
  Company Number: US-APOTEX-2022AP003034

PATIENT
  Age: 72 Year
  Sex: Female

DRUGS (9)
  1. ENOXAPARIN [Suspect]
     Active Substance: ENOXAPARIN
     Indication: COVID-19
     Dosage: UNK
     Route: 065
  2. ENOXAPARIN [Suspect]
     Active Substance: ENOXAPARIN
     Indication: Disseminated intravascular coagulation
  3. ENOXAPARIN [Suspect]
     Active Substance: ENOXAPARIN
     Indication: Prophylaxis
  4. DOXYCYCLINE [Suspect]
     Active Substance: DOXYCYCLINE
     Indication: Bacterial infection
     Dosage: UNK
     Route: 042
  5. DEXAMETHASONE [Concomitant]
     Active Substance: DEXAMETHASONE
     Indication: COVID-19 pneumonia
     Dosage: UNK
     Route: 065
  6. ALBUTEROL [Concomitant]
     Active Substance: ALBUTEROL
     Indication: COVID-19 pneumonia
     Dosage: UNK
     Route: 065
  7. OXYGEN [Concomitant]
     Active Substance: OXYGEN
     Indication: COVID-19 pneumonia
     Dosage: UNK
     Route: 045
  8. VANCOMYCIN [Concomitant]
     Active Substance: VANCOMYCIN
     Indication: COVID-19 pneumonia
     Dosage: UNK
     Route: 065
  9. MEROPENEM [Concomitant]
     Active Substance: MEROPENEM
     Indication: COVID-19 pneumonia
     Dosage: UNK
     Route: 065

REACTIONS (1)
  - Compartment syndrome [Recovered/Resolved with Sequelae]
